FAERS Safety Report 10043413 (Version 1)
Quarter: 2014Q1

REPORT INFORMATION
  Report Type: Spontaneous
  Country: US (occurrence: US)
  Receive Date: 20140328
  Receipt Date: 20140328
  Transmission Date: 20141002
  Serious: No
  Sender: FDA-Public Use
  Company Number: US-PFIZER INC-2014082901

PATIENT
  Sex: Male

DRUGS (2)
  1. GLIPIZIDE [Suspect]
     Dosage: UNKNOWN DOSE ONE TIME A DAY
  2. METFORMIN HCL [Suspect]
     Dosage: 1000 MG 2X/DAY

REACTIONS (1)
  - Glycosylated haemoglobin increased [Unknown]
